FAERS Safety Report 25571221 (Version 1)
Quarter: 2025Q3

REPORT INFORMATION
  Report Type: Report from Study
  Country: JP (occurrence: JP)
  Receive Date: 20250717
  Receipt Date: 20250717
  Transmission Date: 20251021
  Serious: Yes (Other)
  Sender: ROCHE
  Company Number: JP-ROCHE-10000335437

PATIENT

DRUGS (2)
  1. MYCOPHENOLATE MOFETIL [Suspect]
     Active Substance: MYCOPHENOLATE MOFETIL
     Indication: Lupus nephritis
     Route: 065
  2. CYCLOPHOSPHAMIDE [Suspect]
     Active Substance: CYCLOPHOSPHAMIDE
     Indication: Lupus nephritis
     Route: 065

REACTIONS (13)
  - Pneumonia [Unknown]
  - Cytomegalovirus infection reactivation [Unknown]
  - Infection [Unknown]
  - Osteonecrosis [Unknown]
  - Cerebral infarction [Unknown]
  - Cellulitis [Unknown]
  - Herpes zoster [Unknown]
  - Diabetes mellitus [Unknown]
  - Dyslipidaemia [Unknown]
  - Hypertension [Unknown]
  - Insomnia [Unknown]
  - Psychotic disorder [Unknown]
  - Adrenal insufficiency [Unknown]
